FAERS Safety Report 6903855-1 (Version None)
Quarter: 2010Q3

REPORT INFORMATION
  Report Type: 
  Country: None (occurrence: None)
  Receive Date: 20100804
  Receipt Date: 20090119
  Transmission Date: 20110219
  Serious: No
  Sender: FDA-Public Use
  Company Number: US-PFIZER INC-2009157856

PATIENT
  Sex: Female
  Weight: 113.38 kg

DRUGS (8)
  1. LYRICA [Suspect]
     Dosage: 75 MG, 1X/DAY
     Route: 048
     Dates: start: 20090102, end: 20090112
  2. LYRICA [Suspect]
     Dosage: 50 MG, 1X/DAY
     Dates: start: 20090113, end: 20090115
  3. NABUMETONE [Concomitant]
     Dosage: UNK
  4. ALLERGY MEDICATION [Concomitant]
     Dosage: UNK
  5. ALL OTHER THERAPEUTIC PRODUCTS [Concomitant]
     Dosage: UNK
  6. TRAMADOL [Concomitant]
     Dosage: UNK
  7. VITAMIN D [Concomitant]
     Dosage: UNK
  8. ALBUTEROL [Concomitant]
     Dosage: UNK

REACTIONS (2)
  - BURNING SENSATION [None]
  - SOMNOLENCE [None]
